FAERS Safety Report 4809095-4 (Version None)
Quarter: 2005Q4

REPORT INFORMATION
  Report Type: 
  Country: None (occurrence: None)
  Receive Date: 20051021
  Receipt Date: 20020626
  Transmission Date: 20060501
  Serious: Yes (Hospitalization)
  Sender: FDA-Public Use
  Company Number: CA_020605201

PATIENT
  Age: 63 Year
  Sex: Male
  Weight: 50 kg

DRUGS (10)
  1. OLANZAPINE [Suspect]
     Dosage: 10 MG IN THE EVENING
  2. ENALAPRIL [Concomitant]
  3. ASPIRIN 10GR TIMED DISINTEGRATION TAB [Concomitant]
  4. SERTRALINE HCL [Concomitant]
  5. ATENOLOL [Concomitant]
  6. FERROUS FUMARATE [Concomitant]
  7. CEFOTAXIME [Concomitant]
  8. ACETAMINOPHEN [Concomitant]
  9. MULTI-VITAMIN [Concomitant]
  10. SENNA [Concomitant]

REACTIONS (3)
  - DRUG WITHDRAWAL SYNDROME [None]
  - GENERAL PHYSICAL HEALTH DETERIORATION [None]
  - NEUROLEPTIC MALIGNANT SYNDROME [None]
